FAERS Safety Report 6570339-2 (Version None)
Quarter: 2010Q1

REPORT INFORMATION
  Report Type: 
  Country: None (occurrence: None)
  Receive Date: 20100129
  Receipt Date: 20100115
  Transmission Date: 20100710
  Serious: Yes (Hospitalization)
  Sender: FDA-Public Use
  Company Number: AMAG201000033

PATIENT
  Age: 67 Year
  Sex: Female
  Weight: 136 kg

DRUGS (18)
  1. FERAHEME [Suspect]
     Indication: IRON DEFICIENCY ANAEMIA
     Dosage: 11 ML, SINGLE (330 MG, PARTIAL DOSE); INTRAVENOUS
     Route: 042
     Dates: start: 20100115, end: 20100115
  2. FERAHEME [Suspect]
     Indication: RENAL FAILURE CHRONIC
     Dosage: 11 ML, SINGLE (330 MG, PARTIAL DOSE); INTRAVENOUS
     Route: 042
     Dates: start: 20100115, end: 20100115
  3. ASPIRIN [Concomitant]
  4. ATENOLOL [Concomitant]
  5. CYMBALTA [Concomitant]
  6. DARVOCET A500 (DEXTROPROPOXYPHENE NAPSILATE, PARACETAMOL) [Concomitant]
  7. DOCUSATE (DOCUSATE) [Concomitant]
  8. DRISDOL [Concomitant]
  9. FERROUS GLUCONATE (FERROUS GLUCONATE) [Concomitant]
  10. FUROSEMIDE (FUROSEMIDE SODIUM) [Concomitant]
  11. HYDRALAZINE HCL [Concomitant]
  12. ISOSORBIDE (ISOSORBIDE) [Concomitant]
  13. KLOR-CON [Concomitant]
  14. LANTUS [Concomitant]
  15. NOVOLIN 70/30 [Concomitant]
  16. RANITIDINE (RANTIDINE HYDROCHLORIDE) [Concomitant]
  17. TYLENOL ARTHRITIS (PARACETAMOL) [Concomitant]
  18. LIPITOR [Concomitant]

REACTIONS (20)
  - ABDOMINAL DISCOMFORT [None]
  - ANAEMIA [None]
  - BLOOD PRESSURE DECREASED [None]
  - BLOOD PRESSURE SYSTOLIC DECREASED [None]
  - BRADYPHRENIA [None]
  - BURNING SENSATION [None]
  - CHEST PAIN [None]
  - COLITIS ISCHAEMIC [None]
  - DIZZINESS [None]
  - DYSPNOEA [None]
  - FATIGUE [None]
  - FEELING HOT [None]
  - FLUSHING [None]
  - FOAMING AT MOUTH [None]
  - GASTROINTESTINAL HAEMORRHAGE [None]
  - LEUKOCYTOSIS [None]
  - LOSS OF CONSCIOUSNESS [None]
  - PALLOR [None]
  - PNEUMONIA [None]
  - URINARY TRACT INFECTION [None]
